FAERS Safety Report 17765664 (Version 1)
Quarter: 2020Q2

REPORT INFORMATION
  Report Type: Spontaneous
  Country: MX (occurrence: MX)
  Receive Date: 20200509
  Receipt Date: 20200509
  Transmission Date: 20200714
  Serious: Yes (Other)
  Sender: FDA-Public Use
  Company Number: None

PATIENT
  Age: 24 Year
  Sex: Female
  Weight: 78 kg

DRUGS (2)
  1. KLARIX (CLARITHROMYCIN) [Suspect]
     Active Substance: CLARITHROMYCIN
     Indication: PHARYNGITIS
     Dosage: ?          QUANTITY:10 TABLET(S);?
     Route: 048
     Dates: start: 20200506, end: 20200508
  2. HYDROLIZED COLLAGEN [Concomitant]

REACTIONS (11)
  - Abdominal pain upper [None]
  - Headache [None]
  - Insomnia [None]
  - Eye swelling [None]
  - Hypotension [None]
  - Swelling face [None]
  - Palpitations [None]
  - Nausea [None]
  - Chest pain [None]
  - Panic attack [None]
  - Disorientation [None]

NARRATIVE: CASE EVENT DATE: 20200507
